FAERS Safety Report 25853288 (Version 1)
Quarter: 2025Q3

REPORT INFORMATION
  Report Type: Spontaneous
  Country: US (occurrence: None)
  Receive Date: 20250925
  Receipt Date: 20250925
  Transmission Date: 20251021
  Serious: Yes (Other)
  Sender: FDA-CTU
  Company Number: None

PATIENT
  Age: 43 Year
  Sex: Male
  Weight: 74.25 kg

DRUGS (1)
  1. XDEMVY [Suspect]
     Active Substance: LOTILANER
     Indication: Blepharitis
     Dosage: OTHER QUANTITY : 2 BOTTLEA;?FREQUENCY : EVERY 12 HOURS;?
     Route: 047
     Dates: start: 20250325, end: 20250915

REACTIONS (2)
  - Product design issue [None]
  - Product container issue [None]

NARRATIVE: CASE EVENT DATE: 20250923
